FAERS Safety Report 7371705-8 (Version None)
Quarter: 2011Q1

REPORT INFORMATION
  Report Type: 
  Country: None (occurrence: None)
  Receive Date: 20110324
  Receipt Date: 20110316
  Transmission Date: 20110831
  Serious: Yes (Other)
  Sender: FDA-Public Use
  Company Number: PHHO2011CO03884

PATIENT
  Sex: Female
  Weight: 62.2 kg

DRUGS (11)
  1. BLINDED ENALAPRIL [Suspect]
     Indication: CARDIAC FAILURE
     Dosage: CODE NOT BROKEN
     Route: 048
     Dates: start: 20110119, end: 20110317
  2. FURSEMIDA [Concomitant]
     Indication: CARDIAC FAILURE
     Dosage: 40 MG, QD
     Dates: start: 20080610
  3. ALISKIREN [Suspect]
     Indication: CARDIAC FAILURE
     Dosage: UNK
  4. METOPROLOL [Concomitant]
     Indication: CARDIAC FAILURE
     Dosage: 50 MG, BID
     Dates: start: 20080610
  5. BLINDED NO TREATMENT RECEIVED [Suspect]
     Indication: CARDIAC FAILURE
     Dosage: CODE NOT BROKEN
     Route: 048
     Dates: start: 20110119, end: 20110317
  6. COMPARATOR ENALAPRIL [Suspect]
     Indication: CARDIAC FAILURE
     Dosage: UNK
  7. LOVASTATIN [Concomitant]
     Indication: DYSLIPIDAEMIA
     Dosage: 40 MG, QD
     Dates: start: 20080610
  8. ESPIRONOLACTONA [Concomitant]
     Indication: CARDIAC FAILURE
     Dosage: 25 MG, UNK
     Dates: start: 20081110
  9. ASPIRIN [Concomitant]
     Indication: CORONARY ARTERY DISEASE
     Dosage: 100 MG, QD
     Dates: start: 20100610
  10. BLINDED ALISKIREN [Suspect]
     Indication: CARDIAC FAILURE
     Dosage: CODE NOT BROKEN
     Route: 048
     Dates: start: 20110119, end: 20110317
  11. DIGOXIN [Concomitant]
     Indication: CARDIAC FAILURE
     Dosage: 0.1 MG, QD
     Dates: start: 20101215

REACTIONS (2)
  - CONCOMITANT DISEASE PROGRESSION [None]
  - THROMBOCYTOPENIA [None]
